FAERS Safety Report 5739352-9 (Version None)
Quarter: 2008Q2

REPORT INFORMATION
  Report Type: 
  Country: None (occurrence: None)
  Receive Date: 20080515
  Receipt Date: 20080509
  Transmission Date: 20081010
  Serious: Yes (Other)
  Sender: FDA-Public Use
  Company Number: CO-PFIZER INC-2008040727

PATIENT
  Sex: Male

DRUGS (3)
  1. CARDURA [Suspect]
     Route: 048
  2. GLYBURIDE [Concomitant]
  3. ENALAPRIL MALEATE [Concomitant]

REACTIONS (2)
  - TONGUE DISORDER [None]
  - VISION BLURRED [None]
